FAERS Safety Report 9674181 (Version 2)
Quarter: 2013Q4

REPORT INFORMATION
  Report Type: Spontaneous
  Country: US (occurrence: US)
  Receive Date: 20131106
  Receipt Date: 20131106
  Transmission Date: 20140711
  Serious: No
  Sender: FDA-Public Use
  Company Number: US-AMGEN-USASP2013071080

PATIENT
  Age: 58 Year
  Sex: Female

DRUGS (2)
  1. ENBREL [Suspect]
     Indication: RHEUMATOID ARTHRITIS
     Dosage: 50MG WEEKLY
     Route: 058
     Dates: start: 20130712
  2. MTX                                /00113801/ [Concomitant]
     Dosage: UNK UNK, QWK, 4 PILLS

REACTIONS (7)
  - Oropharyngeal pain [Recovered/Resolved]
  - Nasal congestion [Not Recovered/Not Resolved]
  - Fatigue [Not Recovered/Not Resolved]
  - Sinus headache [Recovered/Resolved]
  - Dizziness [Recovered/Resolved]
  - Sensation of pressure [Recovered/Resolved]
  - Neck pain [Recovered/Resolved]
